FAERS Safety Report 12453817 (Version 1)
Quarter: 2016Q2

REPORT INFORMATION
  Report Type: Report from Study
  Country: BR (occurrence: BR)
  Receive Date: 20160609
  Receipt Date: 20160609
  Transmission Date: 20160815
  Serious: Yes (Other)
  Sender: FDA-Public Use
  Company Number: BR-ELI_LILLY_AND_COMPANY-21677711

PATIENT
  Age: 64 Year
  Sex: Female
  Weight: 82 kg

DRUGS (13)
  1. TRIGLYCERIDES [Concomitant]
     Indication: PRODUCT USED FOR UNKNOWN INDICATION
     Dosage: UNK UNK, UNKNOWN
     Route: 065
  2. OXALIPLATIN. [Suspect]
     Active Substance: OXALIPLATIN
     Indication: COLON CANCER METASTATIC
     Dosage: UNK, UNKNOWN
     Route: 065
  3. IRINOTECAN [Suspect]
     Active Substance: IRINOTECAN
     Indication: COLON CANCER METASTATIC
     Dosage: UNK, UNKNOWN
     Route: 065
  4. PROTEINS NOS [Concomitant]
     Indication: PRODUCT USED FOR UNKNOWN INDICATION
     Dosage: UNK UNK, UNKNOWN
     Route: 065
  5. MINERALS NOS [Concomitant]
     Active Substance: MINERALS
     Indication: PRODUCT USED FOR UNKNOWN INDICATION
     Dosage: UNK UNK, UNKNOWN
     Route: 065
  6. CETUXIMAB [Suspect]
     Active Substance: CETUXIMAB
     Dosage: UNK, 2/M
     Route: 042
     Dates: start: 20160222
  7. GAS-X [Concomitant]
     Active Substance: DIMETHICONE
     Indication: FLATULENCE
     Dosage: 128 MG, UNKNOWN
     Route: 065
  8. DIGEPLUS                           /01760901/ [Concomitant]
     Indication: HEPATIC PAIN
     Dosage: UNK UNK, UNKNOWN
     Route: 065
  9. AMINO ACIDS NOS [Concomitant]
     Indication: PRODUCT USED FOR UNKNOWN INDICATION
     Dosage: UNK UNK, UNKNOWN
     Route: 065
  10. CETUXIMAB [Suspect]
     Active Substance: CETUXIMAB
     Indication: COLON CANCER METASTATIC
     Dosage: UNK UNK, Q2WK
     Route: 042
     Dates: start: 201410
  11. 5-FU                               /00098801/ [Suspect]
     Active Substance: FLUOROURACIL
     Indication: COLON CANCER METASTATIC
     Dosage: UNK, UNKNOWN
     Route: 065
  12. FOLINIC ACID [Concomitant]
     Active Substance: LEUCOVORIN
     Dosage: UNK, UNKNOWN
     Route: 065
  13. VITAMINS WITH MINERALS [Concomitant]
     Active Substance: MINERALS\VITAMINS
     Indication: PRODUCT USED FOR UNKNOWN INDICATION
     Dosage: UNK UNK, UNKNOWN
     Route: 065

REACTIONS (12)
  - Labyrinthitis [Recovering/Resolving]
  - Petechiae [Recovered/Resolved]
  - Movement disorder [Recovering/Resolving]
  - Muscular weakness [Recovering/Resolving]
  - Off label use [Unknown]
  - Dry skin [Not Recovered/Not Resolved]
  - Papule [Recovered/Resolved]
  - Immunodeficiency [Recovering/Resolving]
  - Headache [Recovering/Resolving]
  - Sinusitis [Recovering/Resolving]
  - Ear infection [Recovering/Resolving]
  - Formication [Recovering/Resolving]

NARRATIVE: CASE EVENT DATE: 201410
